FAERS Safety Report 6464863-0 (Version None)
Quarter: 2009Q4

REPORT INFORMATION
  Report Type: 
  Country: None (occurrence: None)
  Receive Date: 20091201
  Receipt Date: 20091127
  Transmission Date: 20100525
  Serious: Yes (Hospitalization)
  Sender: FDA-Public Use
  Company Number: A0832110A

PATIENT
  Sex: Female
  Weight: 74.5 kg

DRUGS (6)
  1. LAPATINIB [Suspect]
     Dosage: 1250MG PER DAY
     Route: 048
     Dates: start: 20091118
  2. DOCETAXEL [Suspect]
     Dosage: 137MG EVERY 3 WEEKS
     Route: 042
     Dates: start: 20091118
  3. NORVASC [Concomitant]
     Indication: PROPHYLAXIS
     Dates: start: 20091030
  4. STEMETIL [Concomitant]
     Dates: start: 20091118
  5. DEXAMETHASONE TAB [Concomitant]
     Indication: PROPHYLAXIS
     Dates: start: 20091117
  6. GABAPENTIN [Concomitant]
     Indication: PROPHYLAXIS
     Dates: start: 20091117

REACTIONS (4)
  - ABDOMINAL PAIN [None]
  - CHILLS [None]
  - CYSTITIS [None]
  - NEUTROPENIA [None]
